FAERS Safety Report 10287119 (Version 3)
Quarter: 2014Q3

REPORT INFORMATION
  Report Type: Spontaneous
  Country: IT (occurrence: IT)
  Receive Date: 20140709
  Receipt Date: 20140729
  Transmission Date: 20150326
  Serious: Yes (Life-Threatening, Hospitalization)
  Sender: FDA-Public Use
  Company Number: IT-ELI_LILLY_AND_COMPANY-IT201407002971

PATIENT
  Age: 83 Year
  Sex: Female

DRUGS (1)
  1. OLANZAPINE. [Suspect]
     Active Substance: OLANZAPINE
     Indication: DEMENTIA
     Dosage: 10 MG, QD
     Route: 065
     Dates: start: 201302

REACTIONS (4)
  - Fall [Recovered/Resolved]
  - Hyponatraemia [Unknown]
  - Ischaemic stroke [Unknown]
  - Off label use [Unknown]
